FAERS Safety Report 6300643-4 (Version None)
Quarter: 2009Q3

REPORT INFORMATION
  Report Type: 
  Country: None (occurrence: None)
  Receive Date: 20090803
  Receipt Date: 20090720
  Transmission Date: 20100115
  Serious: Yes (Life-Threatening)
  Sender: FDA-Public Use
  Company Number: ADR10812009

PATIENT
  Age: 79 Year
  Sex: Female

DRUGS (9)
  1. AMLODIPINE [Suspect]
     Dosage: 5 MG ORAL
     Route: 048
  2. RANITIDINE [Suspect]
     Dosage: 300 MG ORAL
     Route: 048
  3. ASPIRIN [Concomitant]
  4. ATORVASTATIN (10 MG) [Concomitant]
  5. LANSOPRAZOLE (10 MG) [Concomitant]
  6. SERETIDE (4 DF) [Concomitant]
  7. TEMAZEPAM [Concomitant]
  8. VALSARTAN [Concomitant]
  9. VENTOLIN (800 MCG) [Concomitant]

REACTIONS (2)
  - ASTHMA [None]
  - LOWER RESPIRATORY TRACT INFECTION [None]
